FAERS Safety Report 17330684 (Version 1)
Quarter: 2020Q1

REPORT INFORMATION
  Report Type: Spontaneous
  Country: US (occurrence: US)
  Receive Date: 20200127
  Receipt Date: 20200127
  Transmission Date: 20200409
  Serious: Yes (Other)
  Sender: FDA-Public Use
  Company Number: US-GILEAD-2020-0448203

PATIENT
  Sex: Female
  Weight: 67.95 kg

DRUGS (19)
  1. YESCARTA [Suspect]
     Active Substance: AXICABTAGENE CILOLEUCEL
     Indication: DIFFUSE LARGE B-CELL LYMPHOMA
     Dosage: 68 ML, ONCE
     Route: 042
     Dates: start: 20190128, end: 20190128
  2. CHLORHEXIDINE [Concomitant]
     Active Substance: CHLORHEXIDINE
     Dosage: UNK
     Dates: start: 20190128, end: 20190210
  3. VALACYCLOVIR [Concomitant]
     Active Substance: VALACYCLOVIR HYDROCHLORIDE
     Dosage: UNK
     Dates: start: 20190128, end: 20190210
  4. ALLOPURINOL. [Concomitant]
     Active Substance: ALLOPURINOL
     Dosage: UNK
     Dates: start: 20190128, end: 20190201
  5. PANTOPRAZOLE [Concomitant]
     Active Substance: PANTOPRAZOLE
     Dosage: UNK
     Dates: start: 20190129, end: 20190210
  6. PROCHLORPERAZINE. [Concomitant]
     Active Substance: PROCHLORPERAZINE
     Dosage: UNK
     Dates: start: 20190201, end: 20190201
  7. SERTRALINE [Concomitant]
     Active Substance: SERTRALINE HYDROCHLORIDE
     Dosage: UNK
     Dates: start: 20190128, end: 20190209
  8. ONDANSETRON [Concomitant]
     Active Substance: ONDANSETRON
     Dosage: UNK
     Dates: start: 20190129, end: 20190129
  9. LACTULOSE. [Concomitant]
     Active Substance: LACTULOSE
     Dosage: UNK
     Dates: start: 20190130, end: 20190130
  10. URSODIOL. [Concomitant]
     Active Substance: URSODIOL
     Dosage: UNK
     Dates: start: 20190128, end: 20190204
  11. DOCUSATE SODIUM. [Concomitant]
     Active Substance: DOCUSATE SODIUM
     Dosage: UNK
     Dates: start: 20190128, end: 20190207
  12. FILGRASTIM SNDZ [Concomitant]
     Dosage: UNK
     Dates: start: 20190213, end: 20190213
  13. LOPERAMIDE [Concomitant]
     Active Substance: LOPERAMIDE
     Dosage: UNK
     Dates: start: 20190203, end: 20190203
  14. CIPROFLOXACIN. [Concomitant]
     Active Substance: CIPROFLOXACIN
     Dosage: UNK
     Dates: start: 20190128, end: 20190130
  15. POLYETHYLENE GLYCOL [Concomitant]
     Active Substance: POLYETHYLENE GLYCOLS
     Dosage: UNK
     Dates: start: 20190129, end: 20190207
  16. CAPHOSOL [Concomitant]
     Active Substance: CALCIUM CHLORIDE\SODIUM CHLORIDE\SODIUM PHOSPHATE, DIBASIC, ANHYDROUS\SODIUM PHOSPHATE, MONOBASIC, ANHYDROUS
     Dosage: UNK
     Dates: start: 20190128, end: 20190210
  17. CLONAZEPAM. [Concomitant]
     Active Substance: CLONAZEPAM
     Dosage: UNK
     Dates: start: 20190204, end: 20190204
  18. FLUCONAZOLE. [Concomitant]
     Active Substance: FLUCONAZOLE
     Dosage: UNK
     Dates: start: 20190128, end: 20190205
  19. POTASSIUM CHLORIDE. [Concomitant]
     Active Substance: POTASSIUM CHLORIDE
     Dosage: UNK
     Dates: start: 20190129, end: 20190208

REACTIONS (1)
  - Cytokine release syndrome [Unknown]

NARRATIVE: CASE EVENT DATE: 20190130
